FAERS Safety Report 21298962 (Version 1)
Quarter: 2022Q3

REPORT INFORMATION
  Report Type: Spontaneous
  Country: KR (occurrence: KR)
  Receive Date: 20220906
  Receipt Date: 20220906
  Transmission Date: 20221027
  Serious: Yes (Other)
  Sender: FDA-Public Use
  Company Number: KR-BRISTOL-MYERS SQUIBB COMPANY-2022-098757

PATIENT
  Age: 63 Year
  Sex: Female

DRUGS (1)
  1. THALIDOMIDE [Suspect]
     Active Substance: THALIDOMIDE
     Indication: Neoplasm
     Route: 065
     Dates: start: 20180108, end: 20180116

REACTIONS (1)
  - Cachexia [Recovering/Resolving]

NARRATIVE: CASE EVENT DATE: 20180116
